FAERS Safety Report 20921687 (Version 3)
Quarter: 2022Q3

REPORT INFORMATION
  Report Type: Report from Study
  Country: JP (occurrence: JP)
  Receive Date: 20220606
  Receipt Date: 20220812
  Transmission Date: 20221026
  Serious: Yes (Other)
  Sender: FDA-Public Use
  Company Number: JP-TAKEDA-2022TJP054980

PATIENT
  Age: 7 Year
  Sex: Male
  Weight: 14 kg

DRUGS (1)
  1. LEVETIRACETAM [Concomitant]
     Active Substance: LEVETIRACETAM
     Indication: Epilepsy
     Route: 065

REACTIONS (4)
  - Respiratory depression [Recovered/Resolved]
  - Respiratory depression [Recovered/Resolved]
  - Respiratory depression [Recovered/Resolved]
  - Drug ineffective [Unknown]

NARRATIVE: CASE EVENT DATE: 20210511
